FAERS Safety Report 7811440-2 (Version None)
Quarter: 2011Q4

REPORT INFORMATION
  Report Type: 
  Country: None (occurrence: None)
  Receive Date: 20111013
  Receipt Date: 20111011
  Transmission Date: 20120403
  Serious: Yes (Hospitalization, Other)
  Sender: FDA-Public Use
  Company Number: US-PFIZER INC-2011218601

PATIENT
  Sex: Female
  Weight: 58.957 kg

DRUGS (3)
  1. MYSOLINE [Concomitant]
     Indication: EPILEPSY
     Dosage: UNK
  2. PHENYTOIN SODIUM [Suspect]
     Indication: EPILEPSY
     Dosage: UNK
     Dates: start: 20110101, end: 20110101
  3. KEPPRA [Suspect]
     Indication: EPILEPSY
     Dosage: 250 MG, DAILY
     Dates: start: 20110101, end: 20110101

REACTIONS (4)
  - SKULL FRACTURE [None]
  - FALL [None]
  - ORAL DISORDER [None]
  - CONVULSION [None]
